FAERS Safety Report 17272389 (Version 1)
Quarter: 2020Q1

REPORT INFORMATION
  Report Type: Spontaneous
  Country: US (occurrence: US)
  Receive Date: 20191223
  Receipt Date: 20191223
  Transmission Date: 20200409
  Serious: Yes (Death)
  Sender: FDA-Public Use
  Company Number: None

PATIENT
  Age: 72 Year
  Sex: Male
  Weight: 90.72 kg

DRUGS (6)
  1. METFORMIN [Concomitant]
     Active Substance: METFORMIN HYDROCHLORIDE
  2. XANAX [Concomitant]
     Active Substance: ALPRAZOLAM
  3. TAMSULOSIN [Concomitant]
     Active Substance: TAMSULOSIN
  4. AMIODARONE HCL [Suspect]
     Active Substance: AMIODARONE HYDROCHLORIDE
     Indication: ATRIAL FIBRILLATION
     Dosage: 1 1/2 TO 2 YEARS
     Route: 048
     Dates: start: 201711, end: 201906
  5. ASPIRIN. [Concomitant]
     Active Substance: ASPIRIN
  6. ROSUVASTATIN. [Concomitant]
     Active Substance: ROSUVASTATIN

REACTIONS (6)
  - Malaise [None]
  - Swelling [None]
  - Acute respiratory distress syndrome [None]
  - Asthenia [None]
  - Paralysis [None]
  - Lung disorder [None]

NARRATIVE: CASE EVENT DATE: 19790616
